FAERS Safety Report 16107155 (Version 1)
Quarter: 2019Q1

REPORT INFORMATION
  Report Type: Spontaneous
  Country: FR (occurrence: FR)
  Receive Date: 20190322
  Receipt Date: 20190322
  Transmission Date: 20190418
  Serious: Yes (Hospitalization)
  Sender: FDA-Public Use
  Company Number: PHHY2019FR063102

PATIENT
  Age: 64 Year
  Sex: Female
  Weight: 82 kg

DRUGS (4)
  1. PARACETAMOL [Suspect]
     Active Substance: ACETAMINOPHEN
     Indication: PYREXIA
     Dosage: 3 G, QD
     Route: 042
     Dates: start: 20190209, end: 20190212
  2. VANCOMYCIN [Suspect]
     Active Substance: VANCOMYCIN
     Indication: PYREXIA
     Dosage: 2000 MG, QD
     Route: 042
     Dates: start: 20190209, end: 20190210
  3. CEFTRIAXON [Suspect]
     Active Substance: CEFTRIAXONE
     Indication: PYREXIA
     Dosage: 1 G, QD
     Route: 042
     Dates: start: 20190209, end: 20190210
  4. ORBENINE [Suspect]
     Active Substance: CLOXACILLIN SODIUM
     Indication: PYREXIA
     Dosage: NON RENSEIGN?E
     Route: 042

REACTIONS (2)
  - Cholestasis [Recovering/Resolving]
  - Hepatitis [Recovering/Resolving]

NARRATIVE: CASE EVENT DATE: 20190212
